FAERS Safety Report 14801973 (Version 1)
Quarter: 2018Q2

REPORT INFORMATION
  Report Type: Spontaneous
  Country: US (occurrence: US)
  Receive Date: 20180424
  Receipt Date: 20180424
  Transmission Date: 20180711
  Serious: No
  Sender: FDA-Public Use
  Company Number: US-PURDUE-USA-2017-0141753

PATIENT
  Sex: Female

DRUGS (1)
  1. OXYCONTIN [Suspect]
     Active Substance: OXYCODONE HYDROCHLORIDE
     Indication: PRODUCT USED FOR UNKNOWN INDICATION
     Dosage: UNK
     Route: 048
     Dates: start: 2001, end: 2012

REACTIONS (6)
  - Diarrhoea [Unknown]
  - Drug dose titration not performed [Unknown]
  - Agitation [Unknown]
  - Insomnia [Unknown]
  - Cold sweat [Unknown]
  - Drug withdrawal syndrome [Unknown]
